FAERS Safety Report 23515504 (Version 1)
Quarter: 2024Q1

REPORT INFORMATION
  Report Type: Spontaneous
  Country: FR (occurrence: FR)
  Receive Date: 20240213
  Receipt Date: 20240213
  Transmission Date: 20240409
  Serious: Yes (Other)
  Sender: FDA-Public Use
  Company Number: None

PATIENT
  Age: 76 Year
  Sex: Female

DRUGS (1)
  1. INSULIN ASPART [Suspect]
     Active Substance: INSULIN ASPART
     Indication: Insulin-requiring type 2 diabetes mellitus
     Dosage: 2DF, QD
     Route: 058
     Dates: start: 20240122, end: 20240122

REACTIONS (4)
  - Somnolence [Recovered/Resolved]
  - Hypoglycaemia [Recovered/Resolved]
  - Accidental overdose [Recovered/Resolved]
  - Duplicate therapy error [Recovered/Resolved]

NARRATIVE: CASE EVENT DATE: 20240122
